FAERS Safety Report 5224728-9 (Version None)
Quarter: 2007Q1

REPORT INFORMATION
  Report Type: 
  Country: None (occurrence: None)
  Receive Date: 20070129
  Receipt Date: 20070129
  Transmission Date: 20070707
  Serious: Yes (Hospitalization)
  Sender: FDA-Public Use
  Company Number: None

PATIENT
  Sex: Female
  Weight: 38.5557 kg

DRUGS (2)
  1. ADVIL LIQUI-GELS [Suspect]
     Indication: PROCEDURAL PAIN
     Dosage: 200MG  1 GEL CAP
     Dates: start: 20061204
  2. ADVIL LIQUI-GELS [Suspect]
     Indication: TOOTH EXTRACTION
     Dosage: 200MG  1 GEL CAP
     Dates: start: 20061204

REACTIONS (5)
  - HAEMATEMESIS [None]
  - HAEMATOMA [None]
  - LUNG DISORDER [None]
  - OPERATIVE HAEMORRHAGE [None]
  - PNEUMONITIS [None]
